FAERS Safety Report 4421817-3 (Version None)
Quarter: 2004Q3

REPORT INFORMATION
  Report Type: 
  Country: None (occurrence: None)
  Receive Date: 20040806
  Receipt Date: 20040727
  Transmission Date: 20050211
  Serious: Yes (Hospitalization)
  Sender: FDA-Public Use
  Company Number: 2004225680FR

PATIENT
  Age: 65 Year
  Sex: Female
  Weight: 200 kg

DRUGS (2)
  1. ALDACTONE [Suspect]
     Dosage: 75 MG, QD, ORAL
     Route: 048
     Dates: end: 20040523
  2. COVERSYL(PERINDOPRIL) [Suspect]
     Dates: end: 20040523

REACTIONS (10)
  - DYSSTASIA [None]
  - ELECTROCARDIOGRAM ABNORMAL [None]
  - FALL [None]
  - HYPERKALAEMIA [None]
  - LACTIC ACIDOSIS [None]
  - LOSS OF CONSCIOUSNESS [None]
  - RENAL FAILURE ACUTE [None]
  - RESPIRATORY ARREST [None]
  - SINUS BRADYCARDIA [None]
  - SYNCOPE [None]
